FAERS Safety Report 23766390 (Version 1)
Quarter: 2024Q2

REPORT INFORMATION
  Report Type: Spontaneous
  Country: CN (occurrence: CN)
  Receive Date: 20240422
  Receipt Date: 20240422
  Transmission Date: 20240716
  Serious: Yes (Other)
  Sender: FDA-Public Use
  Company Number: None

PATIENT
  Age: 12 Year
  Sex: Female
  Weight: 50 kg

DRUGS (2)
  1. CYCLOPHOSPHAMIDE [Suspect]
     Active Substance: CYCLOPHOSPHAMIDE
     Indication: Acute lymphocytic leukaemia
     Dosage: 0.45 G, ONE TIME IN ONE DAY, DILUTED WITH 0.9% SODIUM CHLORIDE 100 ML, START TIME: AT 16:30 HRS
     Route: 041
     Dates: start: 20240402, end: 20240402
  2. SODIUM CHLORIDE [Suspect]
     Active Substance: SODIUM CHLORIDE
     Indication: Medication dilution
     Dosage: 100 ML, ONE TIME IN ONE DAY, STRENGTH: 0.9%, USED TO DILUTE CYCLOPHOSPHAMIDE 0.45 G, START TIME: AT
     Route: 041
     Dates: start: 20240402, end: 20240402

REACTIONS (2)
  - Laryngeal discomfort [Recovered/Resolved]
  - Oxygen saturation decreased [Recovered/Resolved]

NARRATIVE: CASE EVENT DATE: 20240402
